FAERS Safety Report 5777471-1 (Version None)
Quarter: 2008Q2

REPORT INFORMATION
  Report Type: 
  Country: None (occurrence: None)
  Receive Date: 20080618
  Receipt Date: 20080606
  Transmission Date: 20081010
  Serious: Yes (Other)
  Sender: FDA-Public Use
  Company Number: BR-ROCHE-569374

PATIENT
  Sex: Male
  Weight: 61 kg

DRUGS (2)
  1. ROACUTAN [Suspect]
     Indication: ACNE
     Dosage: THERAPY START DATE REPORTED AS 2007.
     Route: 048
     Dates: end: 20070501
  2. ROACUTAN [Suspect]
     Route: 048
     Dates: start: 20070101, end: 20080101

REACTIONS (3)
  - ALOPECIA [None]
  - HAEMORRHAGE [None]
  - ROAD TRAFFIC ACCIDENT [None]
